FAERS Safety Report 4297837-9 (Version None)
Quarter: 2004Q1

REPORT INFORMATION
  Report Type: 
  Country: None (occurrence: None)
  Receive Date: 20040126
  Receipt Date: 20030922
  Transmission Date: 20041129
  Serious: No
  Sender: FDA-Public Use
  Company Number: USA030947847

PATIENT
  Age: 52 Year
  Sex: Female
  Weight: 77 kg

DRUGS (3)
  1. STRATTERA [Suspect]
     Indication: ATTENTION DEFICIT/HYPERACTIVITY DISORDER
     Dosage: 80 MG/1 IN THE MORNING
     Dates: start: 20030822
  2. NORTRIPTYLINE HCL [Concomitant]
  3. WELLBUTRIN [Concomitant]

REACTIONS (2)
  - DRUG EFFECT DECREASED [None]
  - MENTAL IMPAIRMENT [None]
